FAERS Safety Report 17768114 (Version 2)
Quarter: 2020Q2

REPORT INFORMATION
  Report Type: Other
  Country: CA (occurrence: CA)
  Receive Date: 20200511
  Receipt Date: 20200630
  Transmission Date: 20200714
  Serious: Yes (Disabling, Other)
  Sender: FDA-Public Use
  Company Number: CA-METHAPHARM INC.-2083683

PATIENT
  Age: 39 Year
  Sex: Female

DRUGS (1)
  1. PROVOCHOLINE [Suspect]
     Active Substance: METHACHOLINE CHLORIDE
     Indication: DYSPNOEA
     Route: 055

REACTIONS (2)
  - Consciousness fluctuating [Recovered/Resolved]
  - Unresponsive to stimuli [Recovered/Resolved]
